FAERS Safety Report 8167520 (Version 4)
Quarter: 2014Q3

REPORT INFORMATION
  Report Type: Spontaneous
  Country: US (occurrence: US)
  Receive Date: 20111004
  Receipt Date: 20140918
  Transmission Date: 20150326
  Serious: Yes (Hospitalization, Other)
  Sender: FDA-Public Use
  Company Number: US-PFIZER INC-2011233605

PATIENT
  Age: 48 Year
  Sex: Male

DRUGS (29)
  1. DILANTIN [Suspect]
     Active Substance: PHENYTOIN
     Indication: CONVULSION
     Dosage: 400MG KAPSEALS HALF STRENGTH ORALLY
     Route: 048
     Dates: start: 20090312, end: 20090321
  2. LOVENOX [Concomitant]
     Active Substance: ENOXAPARIN SODIUM
     Dosage: 40 MG, UNK
     Route: 058
     Dates: start: 20090311, end: 20090315
  3. VIBRAMYCIN [Concomitant]
     Active Substance: DOXYCYCLINE
     Dosage: 100 MG, 2X/DAY
     Dates: start: 20090311, end: 20090312
  4. ZOVIRAX [Concomitant]
     Active Substance: ACYCLOVIR
     Dosage: 500 MG, EVERY 8 HOURS
     Dates: start: 20090312, end: 20090323
  5. BENADRYL [Concomitant]
     Active Substance: DIPHENHYDRAMINE HYDROCHLORIDE
     Dosage: 25 MG, EVERY 6 HOURS AS NEEDED
     Route: 048
     Dates: start: 20090317, end: 20090328
  6. POLYCILLIN-N FOR INJECTION [Concomitant]
     Dosage: 2 G, UNK
     Route: 042
     Dates: start: 20090311, end: 20090312
  7. NORVASC [Concomitant]
     Active Substance: AMLODIPINE BESYLATE
     Dosage: 10 MG, UNK
     Route: 048
     Dates: start: 20090312, end: 20090312
  8. CEREBYX [Concomitant]
     Active Substance: FOSPHENYTOIN SODIUM
     Dosage: 500 MG, UNK
     Dates: start: 20090312, end: 20090319
  9. TAMSULOSIN [Concomitant]
     Active Substance: TAMSULOSIN
     Dosage: 0.4 MG, HALF STRENGTH UNK
     Route: 048
     Dates: start: 20090313, end: 20090402
  10. PERIDEX [Concomitant]
     Active Substance: CHLORHEXIDINE GLUCONATE
     Dosage: 0.12% 10 ML, 2X/DAY
     Dates: start: 20090317, end: 20090402
  11. NEXIUM [Concomitant]
     Active Substance: ESOMEPRAZOLE MAGNESIUM
     Dosage: 40 MG, 2X/DAY
     Route: 048
     Dates: start: 20090311, end: 20090323
  12. TYLENOL [Concomitant]
     Active Substance: ACETAMINOPHEN
     Dosage: 650 MG, EVERY 6 HOURS AS NEEDED
     Route: 048
     Dates: start: 20090311, end: 20090317
  13. ROCEPHIN [Concomitant]
     Active Substance: CEFTRIAXONE SODIUM
     Dosage: 2 G, 2X/DAY
     Dates: start: 20090317, end: 20090321
  14. COLACE [Concomitant]
     Active Substance: DOCUSATE SODIUM
     Dosage: 240 MG, UNK
     Route: 048
     Dates: start: 20090314, end: 20090402
  15. VANCOCIN [Concomitant]
     Active Substance: VANCOMYCIN HYDROCHLORIDE
     Dosage: 1 G, 2X/DAY
     Dates: start: 20090311, end: 20090317
  16. ZOFRAN [Concomitant]
     Active Substance: ONDANSETRON HYDROCHLORIDE
     Dosage: 4 MG, UNK
     Dates: start: 20090315, end: 20090315
  17. ALBUTEROL. [Concomitant]
     Active Substance: ALBUTEROL
     Dosage: 2.5 MG, EVERY 8 HOURS
     Dates: start: 20090315, end: 20090402
  18. COLACE [Concomitant]
     Active Substance: DOCUSATE SODIUM
     Dosage: 100 MG, 2X/DAY
     Route: 048
     Dates: start: 20090311, end: 20090312
  19. ATROVENT [Concomitant]
     Active Substance: IPRATROPIUM BROMIDE
     Dosage: 0.02 %, UNK
     Dates: start: 20090315, end: 20090402
  20. APRESOLINE HYDROCHLORIDE [Concomitant]
     Active Substance: HYDRALAZINE HYDROCHLORIDE
     Dosage: 10 MG, EVERY 6 HOURS AS NEEDED
     Route: 042
     Dates: start: 20090311, end: 20090312
  21. TYLENOL [Concomitant]
     Active Substance: ACETAMINOPHEN
     Dosage: 650 MG, EVERY 6 HOURS AS NEEDED
     Route: 054
     Dates: start: 20090312, end: 20090402
  22. SOLU-MEDROL [Concomitant]
     Active Substance: METHYLPREDNISOLONE SODIUM SUCCINATE
     Dosage: 40 MG, UNK
     Route: 042
     Dates: start: 20090317, end: 20090317
  23. MAXIPIME [Concomitant]
     Active Substance: CEFEPIME HYDROCHLORIDE
     Dosage: 2 G, 2X/DAY
     Dates: start: 20090311, end: 20090317
  24. ATIVAN [Concomitant]
     Active Substance: LORAZEPAM
     Indication: AGITATION
     Dosage: 2 MG, AS NEEDED
     Dates: start: 20090315, end: 20090402
  25. NEXIUM [Concomitant]
     Active Substance: ESOMEPRAZOLE MAGNESIUM
     Dosage: UNK
     Route: 042
     Dates: start: 20090312, end: 20090314
  26. SURFAK [Concomitant]
     Dosage: 240 MG, 1X/DAY
     Dates: start: 20090314, end: 20090402
  27. HEPARIN [Concomitant]
     Active Substance: HEPARIN SODIUM
     Indication: PULMONARY EMBOLISM
     Dosage: 25000 IU, EVERY 8 HOURS
     Route: 058
     Dates: start: 20090315, end: 20090328
  28. METRONIDAZOLE. [Concomitant]
     Active Substance: METRONIDAZOLE
     Dosage: 500 MG, 2X/DAY
     Dates: start: 20090315, end: 20090321
  29. BENADRYL [Concomitant]
     Active Substance: DIPHENHYDRAMINE HYDROCHLORIDE
     Indication: PRURITUS
     Dosage: 50 MG, UNK
     Route: 042
     Dates: start: 20090317, end: 20090317

REACTIONS (1)
  - Stevens-Johnson syndrome [Recovering/Resolving]

NARRATIVE: CASE EVENT DATE: 20090317
